FAERS Safety Report 12643915 (Version 2)
Quarter: 2016Q3

REPORT INFORMATION
  Report Type: Report from Study
  Country: CA (occurrence: CA)
  Receive Date: 20160811
  Receipt Date: 20160914
  Transmission Date: 20161109
  Serious: Yes (Other)
  Sender: FDA-Public Use
  Company Number: CA-BAYER-2016-111585

PATIENT
  Age: 30 Year
  Sex: Female

DRUGS (4)
  1. CITALOPRAM [Concomitant]
     Active Substance: CITALOPRAM HYDROBROMIDE
     Dosage: UNK
  2. BETASERON [Suspect]
     Active Substance: INTERFERON BETA-1B
     Indication: MULTIPLE SCLEROSIS
     Dosage: 0.062 MG, UNK
     Dates: start: 20160603
  3. BETASERON [Suspect]
     Active Substance: INTERFERON BETA-1B
     Indication: MULTIPLE SCLEROSIS
     Dosage: 0.25 MG, UNK
  4. CIPRALEX [Concomitant]
     Active Substance: ESCITALOPRAM OXALATE
     Dosage: UNK

REACTIONS (11)
  - Injection site abscess [Recovered/Resolved]
  - Palpitations [Recovered/Resolved]
  - Injection site abscess [Recovering/Resolving]
  - Middle insomnia [None]
  - Adverse drug reaction [Not Recovered/Not Resolved]
  - Chest pain [Not Recovered/Not Resolved]
  - Middle insomnia [None]
  - Heart rate increased [Not Recovered/Not Resolved]
  - Influenza like illness [None]
  - Pain [Recovered/Resolved]
  - Panic reaction [Not Recovered/Not Resolved]

NARRATIVE: CASE EVENT DATE: 20160603
